FAERS Safety Report 6550881-0 (Version None)
Quarter: 2010Q1

REPORT INFORMATION
  Report Type: 
  Country: None (occurrence: None)
  Receive Date: 20100125
  Receipt Date: 20100115
  Transmission Date: 20100710
  Serious: Yes (Other)
  Sender: FDA-Public Use
  Company Number: PR-JNJFOC-20100105706

PATIENT
  Age: 60 Year
  Sex: Female
  Weight: 136.08 kg

DRUGS (5)
  1. EXTRA STRENGTH TYLENOL [Suspect]
     Route: 048
  2. EXTRA STRENGTH TYLENOL [Suspect]
     Indication: ARTHRITIS
     Route: 048
  3. VERAPAMIL [Concomitant]
     Indication: HYPERTENSION
     Route: 065
  4. SYNTHROID [Concomitant]
     Indication: THYROID DISORDER
     Route: 065
  5. CALCIUM WITH VITAMIN D [Concomitant]
     Indication: MEDICAL DIET
     Route: 065

REACTIONS (2)
  - PRODUCT QUALITY ISSUE [None]
  - WHEEZING [None]
